FAERS Safety Report 4933946-6 (Version None)
Quarter: 2006Q1

REPORT INFORMATION
  Report Type: 
  Country: None (occurrence: None)
  Receive Date: 20060307
  Receipt Date: 20040506
  Transmission Date: 20060701
  Serious: Yes (Death, Other)
  Sender: FDA-Public Use
  Company Number: 2004CG00887

PATIENT
  Age: 24319 Day
  Sex: Female
  Weight: 94 kg

DRUGS (16)
  1. IRESSA [Suspect]
     Indication: OVARIAN CANCER
     Route: 048
     Dates: start: 20031007, end: 20040428
  2. TAXOL [Suspect]
     Indication: OVARIAN CANCER
     Route: 042
     Dates: start: 20031007, end: 20040206
  3. PARAPLATIN [Suspect]
     Indication: OVARIAN CANCER
     Route: 042
     Dates: start: 20031007, end: 20040206
  4. TENORMIN [Concomitant]
     Indication: HYPERTENSION
     Route: 048
  5. ZESTRIL [Concomitant]
     Indication: HYPERTENSION
     Route: 048
  6. LASILIX [Concomitant]
     Indication: HYPERTENSION
     Route: 048
  7. ZYLORIC [Concomitant]
     Indication: HYPERURICAEMIA
     Route: 048
  8. IMODIUM [Concomitant]
     Indication: DIARRHOEA
     Route: 048
     Dates: start: 20031101
  9. TIORFAN [Concomitant]
     Indication: DIARRHOEA
     Route: 048
     Dates: start: 20031101
  10. STILNOX [Concomitant]
     Indication: INSOMNIA
  11. CIRKAN [Concomitant]
     Indication: VENOUS INSUFFICIENCY
     Route: 048
  12. TAXOL [Concomitant]
     Route: 042
     Dates: start: 20020312, end: 20020312
  13. TAXOL [Concomitant]
     Route: 042
     Dates: start: 20020511, end: 20020823
  14. CARBOPLATIN [Concomitant]
     Route: 042
     Dates: start: 20020312, end: 20020312
  15. CARBOPLATIN [Concomitant]
     Route: 042
     Dates: start: 20020511, end: 20020823
  16. CARBOPLATIN [Concomitant]
     Route: 042
     Dates: start: 20020917, end: 20021120

REACTIONS (2)
  - ANAEMIA [None]
  - MYELODYSPLASTIC SYNDROME [None]
